FAERS Safety Report 13202344 (Version 2)
Quarter: 2017Q1

REPORT INFORMATION
  Report Type: Spontaneous
  Country: US (occurrence: US)
  Receive Date: 20170209
  Receipt Date: 20170323
  Transmission Date: 20170428
  Serious: Yes (Other)
  Sender: FDA-Public Use
  Company Number: US-PFIZER INC-2017049288

PATIENT
  Age: 69 Year
  Sex: Female
  Weight: 72.3 kg

DRUGS (15)
  1. IRON [Concomitant]
     Active Substance: IRON
     Indication: ANAEMIA
     Dosage: 325 MG, DAILY
     Route: 048
  2. PRILOSEC [Concomitant]
     Active Substance: OMEPRAZOLE MAGNESIUM
     Dosage: 20 MG (1 CAPSULE), DAILY
     Route: 048
  3. HEPARIN [Concomitant]
     Active Substance: HEPARIN SODIUM
     Dosage: 1000 IU, SINGLE [FREQUENCY: ONCE]
  4. IBRANCE [Suspect]
     Active Substance: PALBOCICLIB
     Dosage: 125 MG, CYCLIC[ONCE DAILY FOR 21 DAYS THEN 7 DAYS OFF]
     Route: 048
     Dates: start: 20161213
  5. ZOMETA [Concomitant]
     Active Substance: ZOLEDRONIC ACID
     Dosage: 4 MG, MONTHLY (EVERY4 WEEKS)
     Route: 042
     Dates: start: 20160126, end: 20161102
  6. LEVOTHROID [Concomitant]
     Active Substance: LEVOTHYROXINE SODIUM
     Dosage: 50 UG (1 TABLET), DAILY
     Route: 048
  7. ZOMETA [Concomitant]
     Active Substance: ZOLEDRONIC ACID
     Dosage: 4 MG, SINGLE (FREQUENCY: ONCE)
     Route: 042
  8. NORVASC [Concomitant]
     Active Substance: AMLODIPINE BESYLATE
     Dosage: 5 MG, DAILY
     Route: 048
  9. SYNTHROID [Concomitant]
     Active Substance: LEVOTHYROXINE SODIUM
     Dosage: 50 UG (1 TABLET), DAILY
     Route: 048
  10. FEMARA [Concomitant]
     Active Substance: LETROZOLE
     Dosage: 2.5 MG (1 TABLET ), DAILY
     Route: 048
     Dates: start: 20151207
  11. MICRO-K [Concomitant]
     Active Substance: POTASSIUM CHLORIDE
     Dosage: 10 MEQ, DAILY
     Route: 048
  12. LIDOCAINE. [Concomitant]
     Active Substance: LIDOCAINE
     Dosage: 10 ML, ONCE
  13. IBRANCE [Suspect]
     Active Substance: PALBOCICLIB
     Indication: BREAST CANCER METASTATIC
     Dosage: 125 MG (1 CAPSULE), DAILY, FOR 21 DAYS-7 DAYS OFF
     Route: 048
     Dates: start: 20160118
  14. CALCIUM + D3 [Concomitant]
     Active Substance: CALCIUM\CHOLECALCIFEROL
     Dosage: UNK UNK, DAILY
     Route: 048
  15. SODIUM CHLORIDE. [Concomitant]
     Active Substance: SODIUM CHLORIDE
     Dosage: 250 ML, COUNTINOUS
     Route: 042

REACTIONS (7)
  - Arthralgia [Unknown]
  - Lymphocyte count increased [Unknown]
  - Leukopenia [Unknown]
  - Neutrophil count decreased [Unknown]
  - Blood glucose increased [Unknown]
  - Helicobacter gastritis [Unknown]
  - Glomerular filtration rate decreased [Unknown]

NARRATIVE: CASE EVENT DATE: 2016
